FAERS Safety Report 14251134 (Version 2)
Quarter: 2017Q4

REPORT INFORMATION
  Report Type: Spontaneous
  Country: DE (occurrence: DE)
  Receive Date: 20171205
  Receipt Date: 20171221
  Transmission Date: 20180321
  Serious: Yes (Other)
  Sender: FDA-Public Use
  Company Number: DE-VELOXIS PHARMACEUTICALS-2036659

PATIENT
  Age: 64 Year
  Sex: Female

DRUGS (2)
  1. ENVARSUS XR [Suspect]
     Active Substance: TACROLIMUS
     Indication: PROPHYLAXIS AGAINST TRANSPLANT REJECTION
     Route: 048
  2. ENVARSUS XR [Suspect]
     Active Substance: TACROLIMUS
     Route: 048

REACTIONS (2)
  - Immunosuppressant drug level decreased [Unknown]
  - Product quality issue [Unknown]

NARRATIVE: CASE EVENT DATE: 201709
